FAERS Safety Report 22361781 (Version 1)
Quarter: 2023Q2

REPORT INFORMATION
  Report Type: Report from Study
  Country: US (occurrence: US)
  Receive Date: 20230524
  Receipt Date: 20230524
  Transmission Date: 20230721
  Serious: Yes (Life-Threatening, Hospitalization)
  Sender: FDA-Public Use
  Company Number: US-PFIZER INC-PV202300091155

PATIENT
  Age: 75 Year
  Sex: Male
  Weight: 118 kg

DRUGS (5)
  1. DILTIAZEM HYDROCHLORIDE [Suspect]
     Active Substance: DILTIAZEM HYDROCHLORIDE
     Indication: Hypertension
     Dosage: UNK
     Dates: start: 20121012, end: 20220726
  2. METOPROLOL TARTRATE [Suspect]
     Active Substance: METOPROLOL TARTRATE
     Indication: Hypertension
     Dosage: UNK
  3. LASIX [Suspect]
     Active Substance: FUROSEMIDE
     Dosage: UNK
     Dates: start: 20200121, end: 20220726
  4. COUMADIN [Suspect]
     Active Substance: WARFARIN SODIUM
     Dosage: UNK
  5. INVESTIGATIONAL PRODUCT [Suspect]
     Active Substance: INVESTIGATIONAL PRODUCT
     Indication: Cardiac failure
     Dosage: UNK UNK, WEEKLY
     Route: 058
     Dates: start: 20211217

REACTIONS (1)
  - Bradycardia [Recovered/Resolved]

NARRATIVE: CASE EVENT DATE: 20220726
